FAERS Safety Report 5627319-0 (Version None)
Quarter: 2008Q1

REPORT INFORMATION
  Report Type: 
  Country: None (occurrence: None)
  Receive Date: 20080215
  Receipt Date: 20080208
  Transmission Date: 20080703
  Serious: Yes (Hospitalization)
  Sender: FDA-Public Use
  Company Number: AT-JNJFOC-20080201625

PATIENT
  Age: 33 Year
  Sex: Female

DRUGS (10)
  1. HALDOL [Suspect]
     Indication: DRUG USE FOR UNKNOWN INDICATION
  2. TRILEPTAL [Suspect]
     Route: 048
  3. TRILEPTAL [Suspect]
     Indication: DRUG USE FOR UNKNOWN INDICATION
     Route: 048
  4. CIPRALEX [Suspect]
     Route: 048
  5. CIPRALEX [Suspect]
     Indication: DRUG USE FOR UNKNOWN INDICATION
     Route: 048
  6. FERRETAB [Concomitant]
     Route: 048
  7. AKINETON [Concomitant]
     Route: 048
  8. AMITRIPTYLINE HCL [Concomitant]
     Route: 048
  9. IVADAL [Concomitant]
     Route: 048
  10. LAMICTAL [Concomitant]
     Route: 048

REACTIONS (4)
  - DELIRIUM [None]
  - DIARRHOEA [None]
  - HYPONATRAEMIA [None]
  - VOMITING [None]
